FAERS Safety Report 16598116 (Version 1)
Quarter: 2019Q3

REPORT INFORMATION
  Report Type: Spontaneous
  Country: US (occurrence: US)
  Receive Date: 20190719
  Receipt Date: 20190719
  Transmission Date: 20191004
  Serious: Yes (Other)
  Sender: FDA-Public Use
  Company Number: US-PFIZER INC-2019302926

PATIENT
  Age: 30 Year
  Sex: Male

DRUGS (1)
  1. XELJANZ [Suspect]
     Active Substance: TOFACITINIB CITRATE
     Indication: RHEUMATOID ARTHRITIS
     Dosage: UNK

REACTIONS (3)
  - Malaria antibody test positive [Recovered/Resolved]
  - Antibody test positive [Unknown]
  - Relapsing fever [Unknown]
